FAERS Safety Report 9517291 (Version 1)
Quarter: 2013Q3

REPORT INFORMATION
  Report Type: Spontaneous
  Country: US (occurrence: US)
  Receive Date: 20130911
  Receipt Date: 20130911
  Transmission Date: 20140515
  Serious: No
  Sender: FDA-Public Use
  Company Number: US-ASTRAZENECA-2013SE56139

PATIENT
  Age: 82 Year
  Sex: Female
  Weight: 39.9 kg

DRUGS (1)
  1. SYMBICORT [Suspect]
     Indication: ASTHMA
     Dosage: 80/4.5 MCG, TWO INHALATIONS, TWICE DAILY
     Route: 055

REACTIONS (7)
  - Coeliac disease [Unknown]
  - Abdominal pain upper [Unknown]
  - Thyroid function test abnormal [Unknown]
  - Diarrhoea [Unknown]
  - Body height decreased [Unknown]
  - Anaemia [Unknown]
  - Rash [Unknown]
